FAERS Safety Report 6898858 (Version 13)
Quarter: 2014Q1

REPORT INFORMATION
  Report Type: Spontaneous
  Country: US (occurrence: US)
  Receive Date: 20090202
  Receipt Date: 20140313
  Transmission Date: 20141002
  Serious: Yes (Death, Hospitalization, Other)
  Sender: FDA-Public Use
  Company Number: PHEH2009US01039

PATIENT
  Age: 54 Year
  Sex: Male

DRUGS (24)
  1. ZOMETA [Suspect]
     Indication: PROPHYLAXIS
     Dosage: 1 MG, QMO
     Route: 041
     Dates: start: 20030515, end: 2007
  2. RADIATION THERAPY [Concomitant]
  3. LUPRON [Concomitant]
  4. PERCOCET [Concomitant]
  5. TAXOTERE [Concomitant]
     Dosage: 20 MG, UNK
  6. ARANESP [Concomitant]
     Dosage: 5 UG, UNK
  7. CASODEX [Concomitant]
  8. ROXICET [Concomitant]
  9. VALTREX [Concomitant]
     Dosage: 1 G, UNK
  10. OXYCODONE AND ASPIRIN [Concomitant]
  11. KETOCONAZOLE [Concomitant]
  12. LEXAPRO [Concomitant]
     Dosage: 10 MG, UNK
  13. PREDNISONE [Concomitant]
     Dosage: 4 MG, UNK
  14. DEXAMETHASONE [Concomitant]
     Dosage: 4 MG, UNK
  15. LIDOCAINE VISCOUS [Concomitant]
     Dosage: 2 %, UNK
  16. PROTONIX ^PHARMACIA^ [Concomitant]
  17. NEULASTA [Concomitant]
     Dosage: 6 MG, UNK
  18. ANZEMET [Concomitant]
     Dosage: 20 MG, UNK
  19. CARBOPLATIN [Concomitant]
     Dosage: 50 MG, UNK
  20. NOVANTRONE ^IMMUNEX^ [Concomitant]
     Dosage: 5 MG, UNK
  21. DILAUDID [Concomitant]
  22. OXYCONTIN [Concomitant]
  23. AUGMENTIN [Concomitant]
     Dosage: 875 MG, BID
  24. PERIDEX [Concomitant]
     Route: 049

REACTIONS (81)
  - Death [Fatal]
  - Osteonecrosis of jaw [Unknown]
  - Bone disorder [Unknown]
  - Anhedonia [Unknown]
  - General physical health deterioration [Unknown]
  - Pain [Unknown]
  - Osteomyelitis [Unknown]
  - Trismus [Unknown]
  - Abscess jaw [Recovering/Resolving]
  - Cellulitis [Recovering/Resolving]
  - Depression [Unknown]
  - Bone swelling [Unknown]
  - Hypoaesthesia oral [Unknown]
  - Pain in jaw [Unknown]
  - Anxiety [Unknown]
  - Haematuria [Unknown]
  - Pyelocaliectasis [Unknown]
  - Hiatus hernia [Unknown]
  - Ludwig angina [Unknown]
  - Glossodynia [Unknown]
  - Swollen tongue [Unknown]
  - Hypophagia [Unknown]
  - Sepsis [Unknown]
  - Dacryostenosis acquired [Unknown]
  - Swollen tear duct [Unknown]
  - Bronchitis [Unknown]
  - Cardiac valve disease [Unknown]
  - Vertebral foraminal stenosis [Unknown]
  - Neoplasm progression [Unknown]
  - Malignant neoplasm progression [Unknown]
  - Metastases to bone [Unknown]
  - Calculus ureteric [Unknown]
  - Ureteric obstruction [Unknown]
  - Dysphagia [Unknown]
  - Muscle twitching [Unknown]
  - Decubitus ulcer [Unknown]
  - Urinary incontinence [Unknown]
  - Osteoarthritis [Unknown]
  - Dyspnoea exertional [Unknown]
  - Back pain [Unknown]
  - Fatigue [Unknown]
  - Asthenia [Unknown]
  - Pyrexia [Unknown]
  - Blood pressure decreased [Unknown]
  - Anaemia [Unknown]
  - Chills [Unknown]
  - Vascular calcification [Unknown]
  - Nephrolithiasis [Unknown]
  - Arteriosclerosis [Unknown]
  - Spinal pain [Unknown]
  - Nausea [Recovering/Resolving]
  - Restlessness [Unknown]
  - Pericardial disease [Unknown]
  - Night sweats [Unknown]
  - Face oedema [Unknown]
  - Renal infarct [Unknown]
  - Aortic arteriosclerosis [Unknown]
  - Atelectasis [Unknown]
  - Urinary tract infection [Unknown]
  - Hypotension [Unknown]
  - Macrocytosis [Unknown]
  - Joint swelling [Unknown]
  - Insomnia [Unknown]
  - Deafness [Unknown]
  - Pollakiuria [Unknown]
  - Cardiomyopathy [Unknown]
  - Dizziness [Unknown]
  - Pelvic pain [Recovering/Resolving]
  - Renal disorder [Unknown]
  - Ureteric dilatation [Unknown]
  - Obstructive uropathy [Unknown]
  - Intervertebral disc protrusion [Unknown]
  - Metastases to spine [Unknown]
  - Temperature intolerance [Unknown]
  - Constipation [Unknown]
  - Decreased appetite [Unknown]
  - Weight decreased [Unknown]
  - Pain in extremity [Unknown]
  - Arthralgia [Unknown]
  - Flank pain [Unknown]
  - Musculoskeletal chest pain [Unknown]
